FAERS Safety Report 24618664 (Version 2)
Quarter: 2024Q4

REPORT INFORMATION
  Report Type: Report from Study
  Country: US (occurrence: US)
  Receive Date: 20241114
  Receipt Date: 20241119
  Transmission Date: 20250115
  Serious: Yes (Hospitalization)
  Sender: SENTYNL THERAPEUTICS, INC.
  Company Number: US-Sentynl Therapeutics, Inc.-2165034

PATIENT
  Age: 6 Year
  Sex: Male
  Weight: 10.914 kg

DRUGS (1)
  1. ZOKINVY [Suspect]
     Active Substance: LONAFARNIB

REACTIONS (1)
  - Swelling face [Unknown]
